FAERS Safety Report 4650819-7 (Version None)
Quarter: 2005Q2

REPORT INFORMATION
  Report Type: 
  Country: None (occurrence: None)
  Receive Date: 20050503
  Receipt Date: 20050427
  Transmission Date: 20051028
  Serious: Yes (Other)
  Sender: FDA-Public Use
  Company Number: PHNU2005DE01772

PATIENT
  Sex: Female

DRUGS (2)
  1. AREDIA [Suspect]
     Indication: HYPERCALCAEMIA
     Dates: start: 20000101
  2. TAMOXIFEN CITRATE [Concomitant]
     Indication: BREAST CANCER FEMALE
     Dosage: UNK, UNK
     Dates: start: 20000101

REACTIONS (4)
  - DIABETIC NEUROPATHY [None]
  - HYPOAESTHESIA [None]
  - NERVE CONDUCTION STUDIES ABNORMAL [None]
  - PERIPHERAL SENSORY NEUROPATHY [None]
